FAERS Safety Report 9924405 (Version 1)
Quarter: 2014Q1

REPORT INFORMATION
  Report Type: Spontaneous
  Country: US (occurrence: None)
  Receive Date: 20140220
  Receipt Date: 20140220
  Transmission Date: 20141002
  Serious: Yes (Hospitalization)
  Sender: FDA-Public Use
  Company Number: DSU-2014-00303

PATIENT
  Sex: Female

DRUGS (1)
  1. BENICAR (OLMESARTAN MEDOXOMIL) (TABLET) (OLMESARTAN MEDOXOMIL) [Suspect]
     Indication: PRODUCT USED FOR UNKNOWN INDICATION
     Dosage: UNKNOWN, PER ORAL
     Route: 048

REACTIONS (9)
  - Malabsorption [None]
  - Colitis microscopic [None]
  - Colitis microscopic [None]
  - Colitis microscopic [None]
  - Weight decreased [None]
  - Nausea [None]
  - Vomiting [None]
  - Malnutrition [None]
  - Dehydration [None]
